FAERS Safety Report 11228602 (Version 1)
Quarter: 2015Q2

REPORT INFORMATION
  Report Type: Report from Study
  Country: BR (occurrence: BR)
  Receive Date: 20150630
  Receipt Date: 20150630
  Transmission Date: 20150821
  Serious: Yes (Hospitalization)
  Sender: FDA-Public Use
  Company Number: BR-ABBVIE-15K-020-1416253-00

PATIENT
  Age: 23 Year
  Sex: Female
  Weight: 65 kg

DRUGS (9)
  1. AMYTRIL [Concomitant]
     Active Substance: AMITRIPTYLINE HYDROCHLORIDE
     Indication: ANXIETY
     Route: 048
     Dates: start: 20150517
  2. AMYTRIL [Concomitant]
     Active Substance: AMITRIPTYLINE HYDROCHLORIDE
     Indication: CROHN^S DISEASE
  3. OMEPRAZOLE. [Concomitant]
     Active Substance: OMEPRAZOLE
     Indication: PROPHYLAXIS
  4. HUMIRA [Suspect]
     Active Substance: ADALIMUMAB
     Indication: CROHN^S DISEASE
     Dosage: WEEK 0
     Route: 058
     Dates: start: 20141113, end: 20141113
  5. OMEPRAZOLE. [Concomitant]
     Active Substance: OMEPRAZOLE
     Indication: GASTRIC DISORDER
     Route: 048
     Dates: start: 20150517
  6. HUMIRA [Suspect]
     Active Substance: ADALIMUMAB
     Dosage: WEEK 1
     Route: 058
     Dates: start: 201411, end: 201411
  7. HUMIRA [Suspect]
     Active Substance: ADALIMUMAB
     Route: 058
     Dates: end: 20150515
  8. NALTREXONE [Concomitant]
     Active Substance: NALTREXONE
     Indication: CROHN^S DISEASE
     Route: 048
     Dates: start: 2014
  9. IMOSEC [Concomitant]
     Active Substance: LOPERAMIDE
     Indication: CROHN^S DISEASE
     Route: 048
     Dates: start: 20150517

REACTIONS (3)
  - Anaemia [Unknown]
  - Chest pain [Unknown]
  - Urinary tract infection bacterial [Recovering/Resolving]

NARRATIVE: CASE EVENT DATE: 20150517
